FAERS Safety Report 23861841 (Version 1)
Quarter: 2024Q2

REPORT INFORMATION
  Report Type: Spontaneous
  Country: US (occurrence: US)
  Receive Date: 20240516
  Receipt Date: 20240516
  Transmission Date: 20240715
  Serious: Yes (Hospitalization, Other)
  Sender: FDA-Public Use
  Company Number: US-GLAXOSMITHKLINE-US2024GSK060080

PATIENT

DRUGS (3)
  1. BUPROPION [Suspect]
     Active Substance: BUPROPION
     Indication: Product used for unknown indication
     Dosage: UNK
  2. SERTRALINE [Suspect]
     Active Substance: SERTRALINE HYDROCHLORIDE
     Indication: Product used for unknown indication
     Dosage: UNK
  3. HERBALS\MITRAGYNINE [Suspect]
     Active Substance: HERBALS\MITRAGYNINE
     Indication: Tobacco user
     Dosage: UNK

REACTIONS (8)
  - Serotonin syndrome [Unknown]
  - Vomiting [Unknown]
  - Headache [Unknown]
  - Sneezing [Unknown]
  - Seizure [Unknown]
  - Agitation [Recovered/Resolved]
  - Clonus [Recovering/Resolving]
  - Condition aggravated [Unknown]
